FAERS Safety Report 9483447 (Version 1)
Quarter: 2013Q3

REPORT INFORMATION
  Report Type: Spontaneous
  Country: GB (occurrence: GB)
  Receive Date: 20130828
  Receipt Date: 20130828
  Transmission Date: 20140515
  Serious: Yes (Disabling)
  Sender: FDA-Public Use
  Company Number: GB-TEVA-427871ISR

PATIENT
  Age: 47 Year
  Sex: Female
  Weight: 45 kg

DRUGS (6)
  1. DICLOFENAC [Suspect]
     Indication: PERIARTHRITIS
     Dosage: 150 MILLIGRAM DAILY;
     Dates: end: 20121219
  2. CORTISONE [Suspect]
     Indication: PERIARTHRITIS
     Dates: start: 20121205, end: 20121205
  3. NAPROXEN [Concomitant]
     Dosage: TAKE ONE TWICE A DAY IF NEEDED.
     Dates: start: 201208, end: 20121119
  4. NORETHISTERONE [Concomitant]
     Dosage: 15 MILLIGRAM DAILY;
     Dates: start: 201208, end: 20121119
  5. TEVA UK AMITRIPTYLINE [Concomitant]
     Dosage: 10 MILLIGRAM DAILY; TAKE AT NIGHT.
     Dates: start: 2012, end: 20121119
  6. TEVA UK LANSOPRAZOLE [Concomitant]
     Dates: start: 2012, end: 20121119

REACTIONS (13)
  - Diarrhoea [Recovered/Resolved]
  - Weight decreased [Not Recovered/Not Resolved]
  - Abdominal pain lower [Not Recovered/Not Resolved]
  - Fatigue [Not Recovered/Not Resolved]
  - Proctalgia [Not Recovered/Not Resolved]
  - Haematochezia [Not Recovered/Not Resolved]
  - Colitis microscopic [Not Recovered/Not Resolved]
  - Decreased appetite [Not Recovered/Not Resolved]
  - Sensation of pressure [Not Recovered/Not Resolved]
  - Rectal haemorrhage [Not Recovered/Not Resolved]
  - Malaise [Unknown]
  - Mobility decreased [Unknown]
  - Insomnia [Unknown]
